FAERS Safety Report 16542909 (Version 2)
Quarter: 2019Q3

REPORT INFORMATION
  Report Type: Spontaneous
  Country: JP (occurrence: JP)
  Receive Date: 20190709
  Receipt Date: 20190920
  Transmission Date: 20191004
  Serious: Yes (Death, Hospitalization, Other)
  Sender: FDA-Public Use
  Company Number: JP-ASTRAZENECA-2019SE98001

PATIENT
  Age: 30863 Day
  Sex: Female
  Weight: 42 kg

DRUGS (9)
  1. LANSOPRAZOLE. [Concomitant]
     Active Substance: LANSOPRAZOLE
     Indication: PROPHYLAXIS AGAINST GASTROINTESTINAL ULCER
     Route: 048
  2. EDIROL [Concomitant]
     Active Substance: ELDECALCITOL
     Indication: OSTEOPOROSIS PROPHYLAXIS
     Route: 048
  3. TELMISARTAN. [Concomitant]
     Active Substance: TELMISARTAN
     Indication: HYPERTENSION
     Route: 048
  4. TAGRISSO [Suspect]
     Active Substance: OSIMERTINIB
     Indication: NON-SMALL CELL LUNG CANCER
     Route: 048
     Dates: start: 20190318, end: 20190610
  5. DONEPEZIL HYDROCHLORIDE OD [Concomitant]
     Active Substance: DONEPEZIL HYDROCHLORIDE
     Indication: DEMENTIA
     Route: 048
  6. NEUROTROPIN [Concomitant]
     Active Substance: NEUROTROPIN
     Indication: BACK PAIN
     Route: 048
  7. METHYCOBAL [Concomitant]
     Active Substance: METHYLCOBALAMIN
     Indication: NEUROPATHY PERIPHERAL
     Route: 048
  8. BETAHISTINE MESILATE [Concomitant]
     Active Substance: BETAHISTINE MESILATE
     Indication: DIZZINESS
     Route: 048
  9. ATORVASTATIN [Concomitant]
     Active Substance: ATORVASTATIN
     Indication: HYPERLIPIDAEMIA
     Route: 048

REACTIONS (10)
  - Lung disorder [Unknown]
  - Fall [Unknown]
  - Restlessness [Unknown]
  - Delirium [Unknown]
  - Depressed level of consciousness [Unknown]
  - Respiratory acidosis [Unknown]
  - Dehydration [Unknown]
  - Altered state of consciousness [Unknown]
  - Deep vein thrombosis [Recovering/Resolving]
  - Interstitial lung disease [Fatal]

NARRATIVE: CASE EVENT DATE: 20190401
